FAERS Safety Report 9531396 (Version 1)
Quarter: 2013Q3

REPORT INFORMATION
  Report Type: Spontaneous
  Country: DE (occurrence: None)
  Receive Date: 20130916
  Receipt Date: 20130916
  Transmission Date: 20140515
  Serious: Yes (Hospitalization, Other)
  Sender: FDA-Public Use
  Company Number: 2013GB0197

PATIENT
  Age: 55 Year
  Sex: Male

DRUGS (6)
  1. ANAKINRA [Suspect]
     Indication: TUMOUR NECROSIS FACTOR RECEPTOR-ASSOCIATED PERIODIC SYNDROME
     Route: 058
     Dates: start: 20070319, end: 20070521
  2. ETANERCEPT (ETANERCEPT) (ETANERCEPT) [Concomitant]
  3. PREDNISOLONE (PREDNISOLONE (PREDNISOLONE) [Concomitant]
  4. WARFARIN (WARFARIN) (WARFARIN) [Concomitant]
  5. FLUOXETIN (FLUOXETINE HYDROCHLORIDE) (FLUOXETINE HYDROCHLORIDE) [Concomitant]
  6. DIDRONEL (ETIDRONATE DISODIUM) (ETIDRONATE DISODIUM) [Concomitant]

REACTIONS (5)
  - Pulmonary embolism [None]
  - Neutropenia [None]
  - C-reactive protein increased [None]
  - Unevaluable event [None]
  - Drug ineffective [None]
